FAERS Safety Report 25212819 (Version 1)
Quarter: 2025Q2

REPORT INFORMATION
  Report Type: Spontaneous
  Country: CZ (occurrence: CZ)
  Receive Date: 20250418
  Receipt Date: 20250418
  Transmission Date: 20250716
  Serious: Yes (Life-Threatening, Hospitalization, Other)
  Sender: BRISTOL-MYERS SQUIBB COMPANY
  Company Number: None

PATIENT
  Age: 67 Year
  Sex: Female
  Weight: 80 kg

DRUGS (1)
  1. OPDUALAG [Suspect]
     Active Substance: NIVOLUMAB\RELATLIMAB-RMBW
     Indication: Metastatic malignant melanoma
     Dosage: OPDUALAG 480/160 MG EVERY 4 WEEKS
     Route: 042
     Dates: start: 20241216, end: 20250113

REACTIONS (5)
  - Myasthenia gravis [Recovered/Resolved]
  - Liver disorder [Recovered/Resolved]
  - Myocarditis [Recovered/Resolved]
  - Eyelid ptosis [Recovered/Resolved]
  - Bulbar palsy [Recovered/Resolved]

NARRATIVE: CASE EVENT DATE: 20250115
